FAERS Safety Report 7208609-7 (Version None)
Quarter: 2010Q4

REPORT INFORMATION
  Report Type: 
  Country: None (occurrence: None)
  Receive Date: 20101222
  Receipt Date: 20101214
  Transmission Date: 20110411
  Serious: Yes (Other)
  Sender: FDA-Public Use
  Company Number: 2010MA005295

PATIENT
  Sex: Male

DRUGS (1)
  1. METOCLOPRAMIDE [Suspect]
     Dosage: ;PO
     Route: 048
     Dates: start: 20071001, end: 20091201

REACTIONS (5)
  - DYSKINESIA [None]
  - ECONOMIC PROBLEM [None]
  - MUSCLE SPASMS [None]
  - MYOCLONUS [None]
  - TARDIVE DYSKINESIA [None]
